FAERS Safety Report 25369790 (Version 1)
Quarter: 2025Q2

REPORT INFORMATION
  Report Type: Spontaneous
  Country: DE (occurrence: DE)
  Receive Date: 20250528
  Receipt Date: 20250528
  Transmission Date: 20250716
  Serious: Yes (Other)
  Sender: AMGEN
  Company Number: DE-AMGEN-DEUSP2025100366

PATIENT
  Age: 21 Year
  Sex: Female

DRUGS (1)
  1. FILGRASTIM [Suspect]
     Active Substance: FILGRASTIM
     Indication: Infantile genetic agranulocytosis
     Dosage: 10 MICROGRAM/KILOGRAM, QD
     Route: 065

REACTIONS (19)
  - Autism spectrum disorder [Unknown]
  - Haemolytic anaemia [Unknown]
  - Pyoderma streptococcal [Unknown]
  - Pneumonia [Unknown]
  - Splenic abscess [Unknown]
  - Thrombocytopenia [Unknown]
  - Sepsis [Unknown]
  - Dermatitis atopic [Unknown]
  - Scoliosis [Unknown]
  - Foot deformity [Unknown]
  - Pulpitis dental [Unknown]
  - Ear infection [Unknown]
  - Stomatitis [Unknown]
  - Furuncle [Unknown]
  - Hepatosplenomegaly [Unknown]
  - Candida infection [Unknown]
  - Respiratory tract infection [Unknown]
  - Gingivitis [Unknown]
  - Bronchitis [Unknown]
